FAERS Safety Report 14091467 (Version 1)
Quarter: 2017Q4

REPORT INFORMATION
  Report Type: Spontaneous
  Country: US (occurrence: US)
  Receive Date: 20171016
  Receipt Date: 20171016
  Transmission Date: 20180321
  Serious: No
  Sender: FDA-Public Use
  Company Number: US-AUROBINDO-AUR-APU-2017-40655

PATIENT
  Age: 36 Year
  Sex: Female
  Weight: 77.98 kg

DRUGS (3)
  1. FAMOTIDINE TABLETS USP 20MG [Suspect]
     Active Substance: FAMOTIDINE
     Indication: DYSPEPSIA
     Dosage: UNK
     Dates: end: 20170914
  2. FAMOTIDINE TABLETS USP 20MG [Suspect]
     Active Substance: FAMOTIDINE
     Indication: HYPERCHLORHYDRIA
  3. FAMOTIDINE TABLETS USP 20MG [Suspect]
     Active Substance: FAMOTIDINE
     Indication: DYSPEPSIA

REACTIONS (1)
  - Drug ineffective [Recovered/Resolved]

NARRATIVE: CASE EVENT DATE: 20170914
